FAERS Safety Report 7382948-1 (Version None)
Quarter: 2011Q1

REPORT INFORMATION
  Report Type: 
  Country: None (occurrence: None)
  Receive Date: 20110328
  Receipt Date: 20110328
  Transmission Date: 20110831
  Serious: Yes (Hospitalization)
  Sender: FDA-Public Use
  Company Number: None

PATIENT
  Sex: Male
  Weight: 61 kg

DRUGS (3)
  1. BEVACIZUMAB [Suspect]
     Dosage: 305 MG
     Dates: end: 20110301
  2. IRINOTECAN (CPT- 11, CAMPTOSAR) [Suspect]
     Dosage: 317 MG
     Dates: end: 20110301
  3. FLUOROURACIL [Suspect]
     Dosage: 4928 MG
     Dates: end: 20110303

REACTIONS (7)
  - INFLAMMATION [None]
  - HYPOTENSION [None]
  - PEPTIC ULCER PERFORATION [None]
  - POST PROCEDURAL COMPLICATION [None]
  - METASTASES TO GASTROINTESTINAL TRACT [None]
  - HAEMATEMESIS [None]
  - PERITONITIS [None]
